FAERS Safety Report 9237991 (Version 1)
Quarter: 2013Q1

REPORT INFORMATION
  Report Type: Spontaneous
  Country: US (occurrence: None)
  Receive Date: 20121106
  Receipt Date: 20121106
  Transmission Date: 20140127
  Serious: Yes (Other)
  Sender: FDA-Public Use
  Company Number: 1000037493

PATIENT
  Age: 79 Year
  Sex: Female

DRUGS (12)
  1. DALIRESP (ROFLUMILAST) (500 MICROGRAM, TABLETS) [Suspect]
     Indication: CHRONIC OBSTRUCTIVE PULMONARY DISEASE
     Dates: start: 20120606, end: 20120611
  2. REQUIP (ROPINIROLE HYDROCHLORIDE) (0.25 MILLIGRAM, TABLETS) (ROPINIROLE HYDROCHLORIDE) [Concomitant]
  3. DUONEB (COMBIVENT) [Concomitant]
  4. PLAVIX (CLOPIDOGREL BISULFATE) (75 MILLIGRAM, TABLETS) [Concomitant]
  5. ZOCOR (SIMVASTATIN) (40 MILLIGRAM, TABLETS) (SIMVASTATIN) [Concomitant]
  6. SPIRIVA (TIOTROPIUM BROMIDE) (18 MICROGRAM, CAPSULES) (TIOTROPIUM BROMIDE) [Concomitant]
  7. VITAMIN B-12 (CYANOCOBALAMIN) (100 MICROGRAM, TABLETS) (CYANOCOBALAMIN) [Concomitant]
  8. PRESERVISION (OCUVITE LUTEIN) (OCUVITE LUTEIN) [Concomitant]
  9. MAGNESIUM (MAGNESIUM) (500 MILLIGRAM) (MAGNESIUM) [Concomitant]
  10. COMBIVENT (COMBIVENT) [Concomitant]
  11. ASPIRIN (ACETYLSALICYLIC ACID) (81 MILLIGRAM, TABLETS) (ACETYLSALICYLIC ACID) [Concomitant]
  12. PROZAC (FLUOXETINE HYDROCHLORIDE) [Concomitant]

REACTIONS (2)
  - Suicidal ideation [None]
  - Anxiety [None]
